FAERS Safety Report 4712906-4 (Version None)
Quarter: 2005Q3

REPORT INFORMATION
  Report Type: 
  Country: None (occurrence: None)
  Receive Date: 20050713
  Receipt Date: 20050704
  Transmission Date: 20060218
  Serious: Yes (Death)
  Sender: FDA-Public Use
  Company Number: JP-BRISTOL-MYERS SQUIBB COMPANY-13027891

PATIENT
  Age: 62 Year
  Sex: Male

DRUGS (2)
  1. BRIPLATIN [Suspect]
     Indication: GASTRIC CANCER
     Route: 041
     Dates: start: 20030429, end: 20030429
  2. TS-1 [Suspect]
     Indication: GASTRIC CANCER
     Route: 048
     Dates: start: 20030506, end: 20030506

REACTIONS (2)
  - ABDOMINAL PAIN [None]
  - HAEMORRHAGE [None]
